FAERS Safety Report 14077115 (Version 2)
Quarter: 2017Q4

REPORT INFORMATION
  Report Type: Report from Study
  Country: None (occurrence: US)
  Receive Date: 20171012
  Receipt Date: 20171013
  Transmission Date: 20180321
  Serious: Yes (Other)
  Sender: FDA-Public Use
  Company Number: US-ABBVIE-17K-163-2090246-00

PATIENT
  Sex: Female

DRUGS (1)
  1. HUMIRA [Suspect]
     Active Substance: ADALIMUMAB
     Indication: RHEUMATOID ARTHRITIS
     Route: 058
     Dates: end: 2017

REACTIONS (4)
  - Cardiac pacemaker battery replacement [Unknown]
  - Joint stiffness [Not Recovered/Not Resolved]
  - Thyroid operation [Unknown]
  - Cystitis [Unknown]

NARRATIVE: CASE EVENT DATE: 2017
